FAERS Safety Report 22280238 (Version 1)
Quarter: 2023Q2

REPORT INFORMATION
  Report Type: Spontaneous
  Country: US (occurrence: None)
  Receive Date: 20230501
  Receipt Date: 20230501
  Transmission Date: 20230722
  Serious: No
  Sender: FDA-Public Use
  Company Number: None

PATIENT
  Age: 48 Year
  Sex: Male
  Weight: 74.84 kg

DRUGS (5)
  1. PAXLOVID [Suspect]
     Active Substance: NIRMATRELVIR\RITONAVIR
  2. ALBUTERNOL-LATANOPROST EYE DROPS [Concomitant]
  3. N-ACETYL-A-CYSTEIN SUPPLEMENTS [Concomitant]
  4. ACETAMINOPHEN [Concomitant]
     Active Substance: ACETAMINOPHEN
  5. IBUPROFEN [Concomitant]
     Active Substance: IBUPROFEN

REACTIONS (4)
  - COVID-19 [None]
  - SARS-CoV-2 test positive [None]
  - Nasopharyngitis [None]
  - Rhinorrhoea [None]

NARRATIVE: CASE EVENT DATE: 20230430
